FAERS Safety Report 7962261-1 (Version None)
Quarter: 2011Q4

REPORT INFORMATION
  Report Type: 
  Country: None (occurrence: None)
  Receive Date: 20111207
  Receipt Date: 20111202
  Transmission Date: 20120403
  Serious: Yes (Other)
  Sender: FDA-Public Use
  Company Number: PHHY2011AU100333

PATIENT
  Sex: Male
  Weight: 57 kg

DRUGS (3)
  1. ASPIRIN [Concomitant]
     Dosage: 100 MG, DAILY
  2. PREDNISONE [Concomitant]
     Indication: CHRONIC OBSTRUCTIVE PULMONARY DISEASE
     Dosage: 0.5 MG, DAILY
     Route: 048
  3. ONBREZ [Suspect]
     Indication: CHRONIC OBSTRUCTIVE PULMONARY DISEASE
     Dosage: 150 UG, UNK
     Dates: start: 20110401

REACTIONS (1)
  - EPISTAXIS [None]
